FAERS Safety Report 7490972-3 (Version None)
Quarter: 2011Q2

REPORT INFORMATION
  Report Type: 
  Country: None (occurrence: None)
  Receive Date: 20110519
  Receipt Date: 20110504
  Transmission Date: 20111010
  Serious: Yes (Hospitalization, Other)
  Sender: FDA-Public Use
  Company Number: US-ACTELION-A-NJ2011-46136

PATIENT

DRUGS (2)
  1. REVATIO [Concomitant]
  2. VENTAVIS [Suspect]
     Indication: PULMONARY ARTERIAL HYPERTENSION
     Dosage: UNK
     Route: 055
     Dates: start: 20100707

REACTIONS (10)
  - BRONCHOSPASM [None]
  - DEHYDRATION [None]
  - PRODUCTIVE COUGH [None]
  - WEIGHT INCREASED [None]
  - DIZZINESS [None]
  - PULMONARY HYPERTENSION [None]
  - SYNCOPE [None]
  - DYSPNOEA [None]
  - OEDEMA PERIPHERAL [None]
  - BRONCHITIS [None]
